FAERS Safety Report 25040260 (Version 3)
Quarter: 2025Q3

REPORT INFORMATION
  Report Type: Report from Study
  Country: US (occurrence: US)
  Receive Date: 20250305
  Receipt Date: 20250714
  Transmission Date: 20251021
  Serious: Yes (Death, Hospitalization, Other)
  Sender: GILEAD
  Company Number: US-GILEAD-2025-0705600

PATIENT
  Age: 72 Year
  Sex: Female

DRUGS (3)
  1. AMBRISENTAN [Suspect]
     Active Substance: AMBRISENTAN
     Indication: Pulmonary arterial hypertension
     Dosage: 5 MG, QD
     Route: 065
     Dates: start: 201906
  2. AMBRISENTAN [Suspect]
     Active Substance: AMBRISENTAN
     Dosage: 5 MG, QD
     Route: 048
     Dates: start: 201911
  3. UPTRAVI [Suspect]
     Active Substance: SELEXIPAG
     Indication: Pulmonary arterial hypertension
     Dosage: 400 UG, BID
     Route: 048
     Dates: start: 202107

REACTIONS (10)
  - Death [Fatal]
  - Localised infection [Fatal]
  - Leg amputation [Unknown]
  - Loss of personal independence in daily activities [Unknown]
  - Pulmonary embolism [Not Recovered/Not Resolved]
  - Heart valve replacement [Unknown]
  - Autoimmune disorder [Unknown]
  - Decreased appetite [Not Recovered/Not Resolved]
  - Pulmonary arterial pressure increased [Unknown]
  - Impaired healing [Unknown]

NARRATIVE: CASE EVENT DATE: 20250703
